FAERS Safety Report 7573712-9 (Version None)
Quarter: 2011Q2

REPORT INFORMATION
  Report Type: 
  Country: None (occurrence: None)
  Receive Date: 20110627
  Receipt Date: 20110615
  Transmission Date: 20111010
  Serious: Yes (Other)
  Sender: FDA-Public Use
  Company Number: JP-ROCHE-780871

PATIENT
  Sex: Male
  Weight: 54 kg

DRUGS (5)
  1. TRISENOX [Suspect]
     Dosage: INTRAVENOUS (NOT OTHERWISE SPECIFIED)
     Route: 042
     Dates: start: 20110324, end: 20110517
  2. PROMAC [Concomitant]
     Dates: start: 20110512, end: 20110601
  3. LANSOPRAZOLE [Concomitant]
     Route: 048
     Dates: start: 20110519
  4. VESANOID [Suspect]
     Indication: ACUTE PROMYELOCYTIC LEUKAEMIA
     Route: 048
     Dates: start: 20110518
  5. FOIPAN [Concomitant]
     Route: 048
     Dates: start: 20110318, end: 20110525

REACTIONS (1)
  - INTERSTITIAL LUNG DISEASE [None]
